FAERS Safety Report 9544214 (Version 2)
Quarter: 2013Q4

REPORT INFORMATION
  Report Type: Spontaneous
  Country: US (occurrence: US)
  Receive Date: 20130923
  Receipt Date: 20131120
  Transmission Date: 20140711
  Serious: Yes (Other)
  Sender: FDA-Public Use
  Company Number: US-ASTRAZENECA-2013SE68503

PATIENT
  Age: 84 Year
  Sex: Male
  Weight: 86.2 kg

DRUGS (15)
  1. NEXIUM [Suspect]
     Indication: GASTROOESOPHAGEAL REFLUX DISEASE
     Route: 048
  2. NEXIUM [Suspect]
     Indication: GASTROOESOPHAGEAL REFLUX DISEASE
     Route: 048
  3. NEXIUM [Suspect]
     Indication: GASTROOESOPHAGEAL REFLUX DISEASE
     Dosage: QD
     Route: 048
  4. LISINOPRIL [Suspect]
     Route: 048
  5. OXYBUTYNIN [Concomitant]
     Indication: BLADDER DISORDER
     Route: 048
     Dates: end: 201301
  6. OXYBUTYNIN [Concomitant]
     Indication: BLADDER DISORDER
     Route: 048
     Dates: start: 201301
  7. LOVASTATIN [Concomitant]
     Indication: CARDIAC DISORDER
     Route: 048
  8. METOPROL TAR [Concomitant]
     Indication: CARDIAC DISORDER
     Route: 048
  9. COLCRYS TAB [Concomitant]
     Indication: CARDIAC DISORDER
     Route: 048
  10. FUROSEMIDE [Concomitant]
     Dosage: 40MG 1/2 TAB CONT
     Route: 048
     Dates: start: 2007
  11. ISOSORB MONO TAB [Concomitant]
     Route: 048
  12. FISH OIL [Concomitant]
     Indication: SUPPLEMENTATION THERAPY
     Route: 048
  13. MVI [Concomitant]
     Indication: SUPPLEMENTATION THERAPY
     Dosage: 1 DAILY
     Route: 048
  14. ASPIRIN [Concomitant]
     Indication: CARDIAC DISORDER
     Dosage: 1/4 OF 325MG DAILY
     Route: 048
  15. NITROGLYCERIN [Concomitant]
     Indication: CARDIAC DISORDER
     Route: 050

REACTIONS (8)
  - Prostate cancer [Unknown]
  - Gastrooesophageal reflux disease [Not Recovered/Not Resolved]
  - Sleep disorder due to general medical condition, insomnia type [Unknown]
  - Bladder spasm [Not Recovered/Not Resolved]
  - Deafness [Unknown]
  - Body height decreased [Unknown]
  - Urinary incontinence [Not Recovered/Not Resolved]
  - Intentional drug misuse [Unknown]
